FAERS Safety Report 8779527 (Version 6)
Quarter: 2014Q2

REPORT INFORMATION
  Report Type: Spontaneous
  Country: CA (occurrence: CA)
  Receive Date: 20120912
  Receipt Date: 20140424
  Transmission Date: 20141212
  Serious: Yes (Death, Hospitalization, Other)
  Sender: FDA-Public Use
  Company Number: CA-ROCHE-1108788

PATIENT
  Age: 66 Year
  Sex: Male
  Weight: 72 kg

DRUGS (6)
  1. ACTEMRA [Suspect]
     Indication: RHEUMATOID ARTHRITIS
     Route: 042
     Dates: start: 20120305, end: 20120820
  2. NAPROSYN [Concomitant]
  3. PREDNISONE [Concomitant]
  4. PANTOLOC [Concomitant]
  5. ACTONEL [Concomitant]
  6. ANCEF (CANADA) [Concomitant]
     Route: 065
     Dates: start: 20120824

REACTIONS (8)
  - Death [Fatal]
  - Osteomyelitis [Recovered/Resolved]
  - Peripheral swelling [Recovered/Resolved]
  - Drug ineffective [Unknown]
  - Wound [Unknown]
  - White blood cell count decreased [Unknown]
  - Osteomyelitis [Unknown]
  - Anal fungal infection [Not Recovered/Not Resolved]
